FAERS Safety Report 9978761 (Version 1)
Quarter: 2014Q1

REPORT INFORMATION
  Report Type: Report from Study
  Country: US (occurrence: US)
  Receive Date: 20140306
  Receipt Date: 20140306
  Transmission Date: 20141002
  Serious: No
  Sender: FDA-Public Use
  Company Number: US-ABBVIE-13P-163-1168902-00

PATIENT
  Age: 52 Year
  Sex: Female
  Weight: 53.57 kg

DRUGS (20)
  1. HUMIRA [Suspect]
     Indication: RHEUMATOID ARTHRITIS
     Dates: start: 20130713
  2. METHOTREXATE [Concomitant]
     Indication: RHEUMATOID ARTHRITIS
  3. PREDNISONE [Concomitant]
     Indication: RHEUMATOID ARTHRITIS
  4. OMEPRAZOLE [Concomitant]
     Indication: GASTROOESOPHAGEAL REFLUX DISEASE
  5. SPIRONOLACTONE [Concomitant]
     Indication: HYPERTENSION
  6. VERAPAMIL [Concomitant]
     Indication: HYPERTENSION
  7. MELOXICAM [Concomitant]
     Indication: ARTHRALGIA
  8. RESTORIL [Concomitant]
     Indication: SLEEP DISORDER THERAPY
  9. FLAX SEED OIL [Concomitant]
     Indication: CARDIOVASCULAR EVENT PROPHYLAXIS
  10. FOLIC ACID [Concomitant]
     Indication: BONE DISORDER
  11. FOLIC ACID [Concomitant]
     Indication: PROPHYLAXIS
  12. VITAMIN D [Concomitant]
     Indication: BONE DISORDER
  13. VITAMIN D [Concomitant]
     Indication: PROPHYLAXIS
  14. MULTIVITAMIN [Concomitant]
     Indication: PRODUCT USED FOR UNKNOWN INDICATION
  15. VITAMIN C [Concomitant]
     Indication: IMMUNISATION
  16. BIOTIN [Concomitant]
     Indication: ALOPECIA
  17. VITAMIN B12 [Concomitant]
     Indication: BONE DISORDER
  18. VITAMIN B12 [Concomitant]
     Indication: PROPHYLAXIS
  19. BLACK COHOSH [Concomitant]
     Indication: HOT FLUSH
  20. PROLIA [Concomitant]
     Indication: OSTEOPOROSIS

REACTIONS (8)
  - Hand fracture [Not Recovered/Not Resolved]
  - Wrist fracture [Recovering/Resolving]
  - Wrong technique in drug usage process [Unknown]
  - Mobility decreased [Unknown]
  - Incorrect dose administered [Unknown]
  - Fall [Not Recovered/Not Resolved]
  - Arthralgia [Recovered/Resolved]
  - Headache [Recovered/Resolved]
